FAERS Safety Report 9406641 (Version 1)
Quarter: 2013Q3

REPORT INFORMATION
  Report Type: Report from Study
  Country: DE (occurrence: DE)
  Receive Date: 20130718
  Receipt Date: 20130718
  Transmission Date: 20140515
  Serious: Yes (Other)
  Sender: FDA-Public Use
  Company Number: DE-UCBSA-092424

PATIENT
  Sex: 0

DRUGS (1)
  1. GLYCERYL TRINITRATE [Suspect]

REACTIONS (1)
  - Thrombocytopenia [Unknown]
